FAERS Safety Report 6602496-3 (Version None)
Quarter: 2010Q1

REPORT INFORMATION
  Report Type: 
  Country: None (occurrence: None)
  Receive Date: 20100225
  Receipt Date: 20100217
  Transmission Date: 20100710
  Serious: Yes (Hospitalization)
  Sender: FDA-Public Use
  Company Number: US-JNJFOC-20100207906

PATIENT
  Sex: Male

DRUGS (5)
  1. INVEGA [Suspect]
     Indication: PANIC ATTACK
     Route: 048
  2. INVEGA [Suspect]
     Indication: DEPRESSION
     Route: 048
  3. LITHIUM [Concomitant]
     Indication: BIPOLAR DISORDER
  4. SEROQUEL [Concomitant]
     Indication: BIPOLAR DISORDER
  5. TRAZODONE HCL [Concomitant]
     Indication: DEPRESSION

REACTIONS (2)
  - HALLUCINATION, AUDITORY [None]
  - THINKING ABNORMAL [None]
